FAERS Safety Report 5520687-X (Version None)
Quarter: 2007Q4

REPORT INFORMATION
  Report Type: 
  Country: None (occurrence: None)
  Receive Date: 20071119
  Receipt Date: 20071106
  Transmission Date: 20080405
  Serious: Yes (Other)
  Sender: FDA-Public Use
  Company Number: US-PFIZER INC-2007093860

PATIENT
  Age: 18 Year
  Sex: Female

DRUGS (3)
  1. ZITHROMAX [Suspect]
     Indication: UPPER RESPIRATORY TRACT INFECTION
  2. DOXYCYCLINE [Suspect]
     Indication: ACNE
     Dosage: DAILY DOSE:200MG
  3. ORTHO TRI-CYCLEN [Concomitant]
     Indication: MENSTRUATION IRREGULAR

REACTIONS (8)
  - ABDOMINAL PAIN UPPER [None]
  - HYPERSENSITIVITY [None]
  - MALAISE [None]
  - NECROSIS [None]
  - PAIN [None]
  - PHARYNGOLARYNGEAL PAIN [None]
  - SPUTUM ABNORMAL [None]
  - UPPER RESPIRATORY TRACT INFECTION [None]
